FAERS Safety Report 8560267-5 (Version None)
Quarter: 2012Q3

REPORT INFORMATION
  Report Type: 
  Country: None (occurrence: None)
  Receive Date: 20120802
  Receipt Date: 20120718
  Transmission Date: 20120928
  Serious: Yes (Other)
  Sender: FDA-Public Use
  Company Number: TR-ROCHE-1090900

PATIENT
  Sex: Male

DRUGS (3)
  1. XELODA [Suspect]
     Indication: METASTASES TO KIDNEY
  2. XELODA [Suspect]
     Indication: METASTASES TO LUNG
  3. XELODA [Suspect]
     Indication: GASTRIC CANCER
     Dosage: DOSE: 500 MG 4+3
     Route: 048
     Dates: start: 20120403

REACTIONS (1)
  - INTESTINAL PERFORATION [None]
